FAERS Safety Report 6669265-X (Version None)
Quarter: 2010Q2

REPORT INFORMATION
  Report Type: 
  Country: None (occurrence: None)
  Receive Date: 20100406
  Receipt Date: 20100331
  Transmission Date: 20101027
  Serious: Yes (Death, Other)
  Sender: FDA-Public Use
  Company Number: GB-ELI_LILLY_AND_COMPANY-GB201002006155

PATIENT
  Age: 70 Year
  Sex: Male

DRUGS (5)
  1. ALIMTA [Suspect]
     Indication: LUNG CANCER METASTATIC
     Dosage: 500 MG/M2, UNKNOWN
     Route: 042
     Dates: start: 20100114
  2. CISPLATIN [Concomitant]
     Dosage: 75 MG/M2, UNKNOWN
     Route: 042
  3. ANALGESICS [Concomitant]
     Dosage: UNK, UNKNOWN
     Route: 065
  4. DEXAMETHASONE [Concomitant]
     Dosage: UNK, UNKNOWN
     Route: 065
  5. ONDANSETRON [Concomitant]
     Dosage: UNK, UNKNOWN
     Route: 065

REACTIONS (3)
  - DISEASE PROGRESSION [None]
  - LUNG CONSOLIDATION [None]
  - PNEUMONITIS [None]
